FAERS Safety Report 15397017 (Version 1)
Quarter: 2018Q3

REPORT INFORMATION
  Report Type: Spontaneous
  Country: US (occurrence: US)
  Receive Date: 20180918
  Receipt Date: 20180918
  Transmission Date: 20181010
  Serious: No
  Sender: FDA-Public Use
  Company Number: US-SA-2018SA259638

PATIENT
  Age: 54 Year
  Sex: Female

DRUGS (11)
  1. CELEXA [CELECOXIB] [Concomitant]
  2. PREMARIN [Concomitant]
     Active Substance: ESTROGENS, CONJUGATED
  3. LISINOPRIL. [Concomitant]
     Active Substance: LISINOPRIL
  4. GABAPENTIN. [Concomitant]
     Active Substance: GABAPENTIN
  5. DULCOLAX NOS [Concomitant]
     Active Substance: BISACODYL OR DOCUSATE SODIUM
  6. LINZESS [Concomitant]
     Active Substance: LINACLOTIDE
  7. HEPARIN LOCK FLUSH [Concomitant]
     Active Substance: HEPARIN SODIUM
  8. BUSPAR [Concomitant]
     Active Substance: BUSPIRONE HYDROCHLORIDE
  9. AUBAGIO [Suspect]
     Active Substance: TERIFLUNOMIDE
     Indication: MULTIPLE SCLEROSIS
     Dosage: 7 MG, QD
     Route: 048
     Dates: start: 20171228
  10. METFORMIN [Concomitant]
     Active Substance: METFORMIN HYDROCHLORIDE
  11. OXYBUTYNIN CHLORIDE. [Concomitant]
     Active Substance: OXYBUTYNIN CHLORIDE

REACTIONS (3)
  - Gait disturbance [Unknown]
  - Loss of personal independence in daily activities [Unknown]
  - Asthenia [Unknown]

NARRATIVE: CASE EVENT DATE: 20180911
